FAERS Safety Report 6544749-3 (Version None)
Quarter: 2010Q1

REPORT INFORMATION
  Report Type: 
  Country: None (occurrence: None)
  Receive Date: 20100121
  Receipt Date: 20100118
  Transmission Date: 20100710
  Serious: Yes (Other)
  Sender: FDA-Public Use
  Company Number: US-BAYER-201010703BCC

PATIENT
  Sex: Male

DRUGS (1)
  1. ALEVE (CAPLET) [Suspect]
     Indication: SUICIDE ATTEMPT
     Dosage: TOTAL DAILY DOSE: 5500 MG  UNIT DOSE: 220 MG
     Route: 048
     Dates: start: 20100117

REACTIONS (1)
  - NO ADVERSE EVENT [None]
